FAERS Safety Report 6551702-2 (Version None)
Quarter: 2010Q1

REPORT INFORMATION
  Report Type: 
  Country: None (occurrence: None)
  Receive Date: 20100126
  Receipt Date: 20100120
  Transmission Date: 20100710
  Serious: Yes (Hospitalization)
  Sender: FDA-Public Use
  Company Number: US-ELI_LILLY_AND_COMPANY-US201001004019

PATIENT
  Sex: Female

DRUGS (6)
  1. BYETTA [Suspect]
     Indication: TYPE 2 DIABETES MELLITUS
     Dosage: 5 UG, 2/D
     Route: 058
     Dates: start: 20060101, end: 20060101
  2. BYETTA [Suspect]
     Dosage: 10 UG, 2/D
     Route: 058
     Dates: start: 20060101, end: 20081101
  3. METFORMIN HCL [Concomitant]
     Indication: TYPE 2 DIABETES MELLITUS
  4. LIPITOR [Concomitant]
  5. TRICOR [Concomitant]
  6. SYNTHROID [Concomitant]
     Indication: THYROID DISORDER

REACTIONS (6)
  - INFECTION [None]
  - INFLUENZA LIKE ILLNESS [None]
  - MALAISE [None]
  - NEPHROLITHIASIS [None]
  - PYREXIA [None]
  - VOMITING [None]
